FAERS Safety Report 23494771 (Version 1)
Quarter: 2024Q1

REPORT INFORMATION
  Report Type: Report from Study
  Country: US (occurrence: US)
  Receive Date: 20240207
  Receipt Date: 20240207
  Transmission Date: 20240410
  Serious: No
  Sender: FDA-Public Use
  Company Number: US-AGIOS-2401US03632

PATIENT
  Age: 29 Year
  Sex: Male

DRUGS (2)
  1. MITAPIVAT [Suspect]
     Active Substance: MITAPIVAT
     Indication: Pyruvate kinase deficiency anaemia
     Dosage: 50 MILLIGRAM, BID
     Route: 048
     Dates: start: 20230703
  2. MITAPIVAT [Suspect]
     Active Substance: MITAPIVAT
     Dosage: 20 UNK

REACTIONS (4)
  - Poor quality sleep [Recovered/Resolved]
  - COVID-19 [Recovered/Resolved]
  - Haemoglobin decreased [Recovered/Resolved]
  - Gastroenteritis viral [Recovered/Resolved]

NARRATIVE: CASE EVENT DATE: 20231219
